FAERS Safety Report 7390128-9 (Version None)
Quarter: 2011Q2

REPORT INFORMATION
  Report Type: 
  Country: None (occurrence: None)
  Receive Date: 20110401
  Receipt Date: 20110323
  Transmission Date: 20111010
  Serious: Yes (Other)
  Sender: FDA-Public Use
  Company Number: US-BAYER-2011-025741

PATIENT
  Sex: Female

DRUGS (2)
  1. YAZ [Suspect]
  2. YASMIN [Suspect]

REACTIONS (4)
  - POLYCYSTIC OVARIES [None]
  - PREGNANCY ON ORAL CONTRACEPTIVE [None]
  - MENSTRUATION IRREGULAR [None]
  - ADNEXA UTERI PAIN [None]
